FAERS Safety Report 5546620-2 (Version None)
Quarter: 2007Q4

REPORT INFORMATION
  Report Type: 
  Country: None (occurrence: None)
  Receive Date: 20071211
  Receipt Date: 20071130
  Transmission Date: 20080405
  Serious: Yes (Death)
  Sender: FDA-Public Use
  Company Number: CH-JNJFOC-20071105323

PATIENT
  Sex: Male

DRUGS (4)
  1. DURAGESIC-100 [Suspect]
     Indication: PAIN
     Route: 062
  2. MORPHINE [Concomitant]
     Indication: PAIN
     Route: 065
  3. LORNOXICAM [Concomitant]
     Indication: PAIN
     Route: 065
  4. DEXAMETHASONE [Concomitant]
     Indication: PAIN
     Route: 065

REACTIONS (4)
  - APATHY [None]
  - CONFUSIONAL STATE [None]
  - METASTATIC NEOPLASM [None]
  - SOMNOLENCE [None]
